FAERS Safety Report 7721073-4 (Version None)
Quarter: 2011Q3

REPORT INFORMATION
  Report Type: 
  Country: None (occurrence: None)
  Receive Date: 20110831
  Receipt Date: 20110122
  Transmission Date: 20111222
  Serious: No
  Sender: FDA-Public Use
  Company Number: US-BAYER-2011-008661

PATIENT
  Sex: Female

DRUGS (1)
  1. MIRENA [Suspect]
     Dosage: 20 MCG/24HR, UNK
     Dates: start: 20100601

REACTIONS (2)
  - HYPOMENORRHOEA [None]
  - MENSTRUAL DISORDER [None]
